FAERS Safety Report 9227894 (Version 1)
Quarter: 2013Q2

REPORT INFORMATION
  Report Type: Spontaneous
  Country: US (occurrence: None)
  Receive Date: 20130411
  Receipt Date: 20130411
  Transmission Date: 20140414
  Serious: Yes (Hospitalization)
  Sender: FDA-Public Use
  Company Number: None

PATIENT
  Age: 66 Year
  Sex: Female
  Weight: 70 kg

DRUGS (2)
  1. VINCRISTINE [Suspect]
     Indication: LYMPHOMA
     Route: 040
     Dates: start: 20121025, end: 20120212
  2. MORPHINE -MS CONTIN [Suspect]
     Indication: PAIN
     Route: 048
     Dates: start: 20121025, end: 20130212

REACTIONS (4)
  - Ileus [None]
  - Small intestinal obstruction [None]
  - Intestinal perforation [None]
  - Constipation [None]
